FAERS Safety Report 6122416-8 (Version None)
Quarter: 2009Q1

REPORT INFORMATION
  Report Type: 
  Country: None (occurrence: None)
  Receive Date: 20090318
  Receipt Date: 20090120
  Transmission Date: 20090719
  Serious: No
  Sender: FDA-Public Use
  Company Number: US-ASTRAZENECA-2009UW01905

PATIENT
  Age: 2922 Day
  Sex: Female
  Weight: 17.2 kg

DRUGS (5)
  1. SYMBICORT [Suspect]
     Indication: ASTHMA
     Dosage: 160/ 4.5  MCG TWICE A DAY
     Route: 055
     Dates: end: 20090116
  2. SYMBICORT [Suspect]
     Dosage: 80/4.5 MCG TWICE A DAY
     Route: 055
     Dates: start: 20080101, end: 20090101
  3. NASONEX [Concomitant]
     Indication: ASTHMA
  4. MIRALAX [Concomitant]
     Indication: CONSTIPATION
  5. GENOTROPHIN [Concomitant]
     Indication: BLOOD GROWTH HORMONE

REACTIONS (2)
  - ANXIETY [None]
  - PANIC ATTACK [None]
